FAERS Safety Report 14566277 (Version 2)
Quarter: 2018Q2

REPORT INFORMATION
  Report Type: Spontaneous
  Country: US (occurrence: US)
  Receive Date: 20180223
  Receipt Date: 20180418
  Transmission Date: 20180711
  Serious: Yes (Other)
  Sender: FDA-Public Use
  Company Number: US-PFIZER INC-2018075241

PATIENT
  Age: 51 Year
  Sex: Female
  Weight: 72.56 kg

DRUGS (2)
  1. IBRANCE [Suspect]
     Active Substance: PALBOCICLIB
     Indication: BREAST CANCER FEMALE
     Dosage: 125 MG, UNK
     Route: 048
     Dates: start: 20171221
  2. IBRANCE [Suspect]
     Active Substance: PALBOCICLIB
     Dosage: 100 MG, CYCLIC (DAILY, DAYS 1 TO 21 OF A 28-DAY CYCLE)
     Route: 048
     Dates: start: 20171221

REACTIONS (6)
  - Contusion [Unknown]
  - Swelling [Unknown]
  - Lip blister [Unknown]
  - Neutropenia [Recovered/Resolved]
  - Fatigue [Unknown]
  - Somnolence [Unknown]

NARRATIVE: CASE EVENT DATE: 20180213
